FAERS Safety Report 6925213-6 (Version None)
Quarter: 2010Q3

REPORT INFORMATION
  Report Type: 
  Country: None (occurrence: None)
  Receive Date: 20100816
  Receipt Date: 20100804
  Transmission Date: 20110219
  Serious: Yes (Hospitalization, Other)
  Sender: FDA-Public Use
  Company Number: US-SANOFI-AVENTIS-2010SA046180

PATIENT
  Age: 81 Year
  Sex: Male

DRUGS (4)
  1. LOVENOX [Suspect]
     Route: 065
     Dates: start: 20100501, end: 20100501
  2. ANTIHYPERTENSIVES [Concomitant]
  3. ASPIRIN [Concomitant]
     Dates: end: 20100501
  4. COUMADIN [Concomitant]

REACTIONS (5)
  - APNOEA [None]
  - INFECTION [None]
  - LARGE INTESTINE PERFORATION [None]
  - MALAISE [None]
  - THORACIC HAEMORRHAGE [None]
